FAERS Safety Report 4832864-1 (Version None)
Quarter: 2005Q4

REPORT INFORMATION
  Report Type: 
  Country: None (occurrence: None)
  Receive Date: 20051121
  Receipt Date: 20051115
  Transmission Date: 20060501
  Serious: Yes (Other)
  Sender: FDA-Public Use
  Company Number: US-GLAXOSMITHKLINE-A0582390A

PATIENT
  Age: 59 Year
  Sex: Male

DRUGS (2)
  1. RETROVIR [Suspect]
     Indication: HIV INFECTION
     Dosage: 300MG TWICE PER DAY
     Route: 048
     Dates: start: 19920101
  2. TRUVADA [Concomitant]

REACTIONS (4)
  - FATIGUE [None]
  - NAIL DISCOLOURATION [None]
  - NEUROPATHY [None]
  - SKIN DISCOLOURATION [None]
